FAERS Safety Report 4326211-1 (Version None)
Quarter: 2004Q1

REPORT INFORMATION
  Report Type: 
  Country: None (occurrence: None)
  Receive Date: 20040324
  Receipt Date: 20040317
  Transmission Date: 20041129
  Serious: Yes (Hospitalization, Other)
  Sender: FDA-Public Use
  Company Number: FRWYE645517MAR04

PATIENT
  Age: 47 Year
  Sex: Male

DRUGS (2)
  1. TAZOCILLINE (PIPERACILLIN/TAZOBACTAM) [Suspect]
     Dosage: 4 G 1 X PER 1 DAY
     Route: 042
     Dates: start: 20040108, end: 20040114
  2. AMIKACIN [Suspect]
     Dosage: 1500 MG 1 X PER 1 DAY
     Route: 042
     Dates: start: 20040109, end: 20040114

REACTIONS (1)
  - ACUTE GENERALISED EXANTHEMATOUS PUSTULOSIS [None]
